FAERS Safety Report 4676735-2 (Version None)
Quarter: 2005Q2

REPORT INFORMATION
  Report Type: 
  Country: None (occurrence: None)
  Receive Date: 20050527
  Receipt Date: 20050520
  Transmission Date: 20051028
  Serious: Yes (Hospitalization)
  Sender: FDA-Public Use
  Company Number: IT-ABBOTT-05P-083-0301306-00

PATIENT
  Age: 16 Year
  Sex: Male

DRUGS (2)
  1. VECLAM SUSPENSION [Suspect]
     Indication: PNEUMONIA
     Route: 048
  2. LAMOTRIGINE [Concomitant]
     Indication: EPILEPSY

REACTIONS (2)
  - SOMNOLENCE [None]
  - VOMITING [None]
